FAERS Safety Report 19770861 (Version 4)
Quarter: 2021Q3

REPORT INFORMATION
  Report Type: Report from Study
  Country: DO (occurrence: DO)
  Receive Date: 20210831
  Receipt Date: 20210929
  Transmission Date: 20211014
  Serious: Yes (Death, Hospitalization)
  Sender: FDA-Public Use
  Company Number: NVSC2021DO122586

PATIENT
  Age: 43 Year
  Sex: Female

DRUGS (2)
  1. KISQALI [Suspect]
     Active Substance: RIBOCICLIB
     Indication: BREAST CANCER
     Dosage: 600 MG, QD
     Route: 048
     Dates: start: 20200720
  2. KISQALI [Suspect]
     Active Substance: RIBOCICLIB
     Dosage: 600 MG, QD
     Route: 048
     Dates: start: 20200722

REACTIONS (16)
  - COVID-19 [Fatal]
  - Thrombosis [Unknown]
  - Inflammation [Unknown]
  - Malaise [Unknown]
  - Neck mass [Unknown]
  - Pulmonary mass [Unknown]
  - Lung neoplasm malignant [Fatal]
  - Tachycardia [Unknown]
  - Cough [Unknown]
  - Pleural effusion [Unknown]
  - Pain [Unknown]
  - Agitation [Unknown]
  - Second primary malignancy [Fatal]
  - Arthralgia [Unknown]
  - Swelling [Unknown]
  - Breast mass [Unknown]

NARRATIVE: CASE EVENT DATE: 20210411
